FAERS Safety Report 9192673 (Version 1)
Quarter: 2013Q1

REPORT INFORMATION
  Report Type: Spontaneous
  Country: US (occurrence: None)
  Receive Date: 20120703
  Receipt Date: 20120703
  Transmission Date: 20140127
  Serious: Yes (Other)
  Sender: FDA-Public Use
  Company Number: PHEH2012US010728

PATIENT
  Age: 71 Year
  Sex: Female
  Weight: 57.6 kg

DRUGS (7)
  1. GILENYA (FTY)CAPSULE,0.5MG [Suspect]
     Indication: MULTIPLE SCLEROSIS
     Route: 048
     Dates: start: 20120523, end: 20120523
  2. LISINOPRIL (LISINOPRIL) [Concomitant]
  3. HYDROCHLOROTHIAZIDE (HYDROCHLOROTHIAZIDE) [Concomitant]
  4. ASPIRIIN (ACETYLSALICYLIC ACID) [Concomitant]
  5. PROVIGIL (MODAFINIL) [Concomitant]
  6. NEUROTRONIN(GABAPENTIN) [Concomitant]
  7. CLIMARA (ESTRADIOL) [Concomitant]

REACTIONS (4)
  - Bradycardia [None]
  - Electrocardiogram PR prolongation [None]
  - Feeling abnormal [None]
  - Electrocardiogram QT prolonged [None]
